FAERS Safety Report 10237726 (Version 1)
Quarter: 2014Q2

REPORT INFORMATION
  Report Type: Spontaneous
  Country: GB (occurrence: GB)
  Receive Date: 20140616
  Receipt Date: 20140616
  Transmission Date: 20141212
  Serious: Yes (Life-Threatening, Hospitalization)
  Sender: FDA-Public Use
  Company Number: GB-ACCORD-024193

PATIENT
  Sex: 0

DRUGS (11)
  1. ALLOPURINOL/ALLOPURINOL SODIUM [Suspect]
     Indication: GOUT
     Route: 048
     Dates: start: 20140511
  2. AZATHIOPRINE [Interacting]
     Indication: LUPUS NEPHRITIS
     Route: 048
     Dates: start: 1992
  3. SECURON SR [Concomitant]
     Dosage: SECURON SR
  4. WARFARIN/WARFARIN POTASSIUM/WARFARIN SODIUM/WARFARIN SODIUM CLATHRATE [Concomitant]
  5. LISINOPRIL [Concomitant]
  6. SALBUTAMOL [Concomitant]
  7. BUDESONIDE/FORMOTEROL FUMARATE [Concomitant]
  8. ALFACALCIDOL [Concomitant]
  9. PREDNISOLONE [Concomitant]
     Indication: LYMPHANGIOLEIOMYOMATOSIS
  10. DIGOXIN [Concomitant]
  11. FUROSEMIDE [Concomitant]

REACTIONS (4)
  - Thrombocytopenia [Recovering/Resolving]
  - Renal failure [Unknown]
  - Drug interaction [Unknown]
  - Septic shock [Recovering/Resolving]
